FAERS Safety Report 4844219-4 (Version None)
Quarter: 2005Q4

REPORT INFORMATION
  Report Type: 
  Country: None (occurrence: None)
  Receive Date: 20051202
  Receipt Date: 20051123
  Transmission Date: 20060501
  Serious: Yes (Death)
  Sender: FDA-Public Use
  Company Number: BE-ABBOTT-05P-013-0317958-00

PATIENT

DRUGS (4)
  1. CYCLOSPORINE [Suspect]
     Indication: RENAL AND PANCREAS TRANSPLANT
     Dosage: NOT REPORTED
  2. ANTILYMPHOCYTE IMMUNOGLOBULIN (RABBIT) [Concomitant]
     Indication: RENAL AND PANCREAS TRANSPLANT
     Dosage: NOT REPORTED
  3. MYCOPHENOLATE MOFETIL [Concomitant]
     Indication: RENAL AND PANCREAS TRANSPLANT
     Dosage: NOT REPORTED
  4. SHORT-TERM CORTICOSTEROIDS [Concomitant]
     Indication: RENAL AND PANCREAS TRANSPLANT
     Dosage: NOT REPORTED

REACTIONS (1)
  - CARDIOVASCULAR DISORDER [None]
